FAERS Safety Report 5977390-1 (Version None)
Quarter: 2008Q4

REPORT INFORMATION
  Report Type: 
  Country: None (occurrence: None)
  Receive Date: 20081201
  Receipt Date: 20081201
  Transmission Date: 20090506
  Serious: Yes (Life-Threatening, Hospitalization)
  Sender: FDA-Public Use
  Company Number: None

PATIENT
  Age: 91 Year
  Sex: Female
  Weight: 68.4932 kg

DRUGS (1)
  1. PROPAFENONE HCL [Suspect]
     Indication: ARRHYTHMIA
     Dosage: 150MG 3 TIMES A DAY PO
     Route: 048
     Dates: start: 20080611, end: 20081010

REACTIONS (7)
  - ASTHENIA [None]
  - BLOOD PRESSURE DECREASED [None]
  - FALL [None]
  - HYPERTENSION [None]
  - INCORRECT DOSE ADMINISTERED [None]
  - MYOCARDIAL INFARCTION [None]
  - PRODUCT QUALITY ISSUE [None]
